APPROVED DRUG PRODUCT: FULVESTRANT
Active Ingredient: FULVESTRANT
Strength: 250MG/5ML (50MG/ML)
Dosage Form/Route: SOLUTION;INTRAMUSCULAR
Application: A215169 | Product #001 | TE Code: AO
Applicant: EUGIA PHARMA SPECIALITIES LTD
Approved: Jun 30, 2023 | RLD: No | RS: No | Type: RX